FAERS Safety Report 5092814-2 (Version None)
Quarter: 2006Q3

REPORT INFORMATION
  Report Type: 
  Country: None (occurrence: None)
  Receive Date: 20060830
  Receipt Date: 20060427
  Transmission Date: 20061208
  Serious: Yes (Other)
  Sender: FDA-Public Use
  Company Number: IE-GLAXOSMITHKLINE-B0421697A

PATIENT
  Age: 24 Year
  Sex: Female

DRUGS (1)
  1. AQUAFRESH EXTREME CLEAN WHITENING TOOTHPASTE [Suspect]
     Indication: DENTAL CLEANING
     Dates: start: 20060422, end: 20060422

REACTIONS (9)
  - ANAPHYLACTIC SHOCK [None]
  - ANGIONEUROTIC OEDEMA [None]
  - DERMATITIS ALLERGIC [None]
  - EYE SWELLING [None]
  - PERIORBITAL OEDEMA [None]
  - PHARMACEUTICAL PRODUCT COMPLAINT [None]
  - RASH [None]
  - SWELLING FACE [None]
  - VOMITING [None]
